FAERS Safety Report 5172554-1 (Version None)
Quarter: 2006Q4

REPORT INFORMATION
  Report Type: 
  Country: None (occurrence: None)
  Receive Date: 20061213
  Receipt Date: 20060908
  Transmission Date: 20070319
  Serious: No
  Sender: FDA-Public Use
  Company Number: US-AMGEN-KDL192983

PATIENT
  Sex: Female

DRUGS (5)
  1. ENBREL [Suspect]
     Indication: RHEUMATOID ARTHRITIS
     Route: 058
     Dates: start: 20060727
  2. PLAQUENIL [Concomitant]
     Dates: start: 20040101
  3. ALLEGRA [Concomitant]
     Dates: start: 20050315
  4. DICLOFENAC SODIUM [Concomitant]
     Dates: start: 20020101
  5. PREDNISONE TAB [Concomitant]
     Dates: start: 20050301

REACTIONS (1)
  - INJECTION SITE REACTION [None]
